FAERS Safety Report 4371124-2 (Version None)
Quarter: 2004Q2

REPORT INFORMATION
  Report Type: 
  Country: None (occurrence: None)
  Receive Date: 20040601
  Receipt Date: 20040521
  Transmission Date: 20050107
  Serious: Yes (Death, Other)
  Sender: FDA-Public Use
  Company Number: 2004-05-1628

PATIENT
  Age: 66 Year
  Sex: Male

DRUGS (1)
  1. DIPROSPAN (BETAMETHASONE SODIUM PHOSPHATE/ DIPROPIONA INJECTABLE SUSPE [Suspect]
     Indication: ASTHMA
     Dosage: INTRAVENOUS
     Route: 042

REACTIONS (2)
  - CHEST PAIN [None]
  - DYSPNOEA [None]
